FAERS Safety Report 6648668-3 (Version None)
Quarter: 2010Q1

REPORT INFORMATION
  Report Type: 
  Country: None (occurrence: None)
  Receive Date: 20100319
  Receipt Date: 20100312
  Transmission Date: 20100710
  Serious: Yes (Other)
  Sender: FDA-Public Use
  Company Number: 534395

PATIENT
  Sex: Female

DRUGS (2)
  1. MIDAZOLAM HCL [Suspect]
     Dosage: 3 MG
  2. PROPOFOL [Suspect]
     Dosage: 80 MG

REACTIONS (1)
  - URINARY INCONTINENCE [None]
